FAERS Safety Report 21763540 (Version 2)
Quarter: 2023Q1

REPORT INFORMATION
  Report Type: Spontaneous
  Country: GB (occurrence: None)
  Receive Date: 20221221
  Receipt Date: 20230103
  Transmission Date: 20230418
  Serious: Yes (Hospitalization, Other)
  Sender: FDA-Public Use
  Company Number: GB-Unichem Pharmaceuticals (USA) Inc-UCM202212-001317

PATIENT
  Age: 53 Year
  Sex: Female

DRUGS (15)
  1. TIZANIDINE [Suspect]
     Active Substance: TIZANIDINE
     Indication: Ankylosing spondylitis
  2. TIZANIDINE [Suspect]
     Active Substance: TIZANIDINE
     Indication: Insomnia
     Dosage: AT 6 PM
  3. TIZANIDINE [Suspect]
     Active Substance: TIZANIDINE
  4. TIZANIDINE [Suspect]
     Active Substance: TIZANIDINE
  5. TIZANIDINE [Suspect]
     Active Substance: TIZANIDINE
  6. TIZANIDINE [Suspect]
     Active Substance: TIZANIDINE
  7. TIZANIDINE [Suspect]
     Active Substance: TIZANIDINE
     Dosage: UP TO ABOUT 90 MG
  8. TIZANIDINE [Suspect]
     Active Substance: TIZANIDINE
  9. TIZANIDINE [Suspect]
     Active Substance: TIZANIDINE
     Dosage: 3 HOURLY, THE PATIENT WAS STRUGGLING WITH WITHDRAWAL
  10. TIZANIDINE [Suspect]
     Active Substance: TIZANIDINE
     Dosage: 6 DOSES PER DAY
  11. TIZANIDINE [Suspect]
     Active Substance: TIZANIDINE
  12. ONDANSETRON [Concomitant]
     Active Substance: ONDANSETRON
     Indication: Product used for unknown indication
  13. ZOPICLONE [Concomitant]
     Active Substance: ZOPICLONE
     Indication: Insomnia
     Dosage: UNKNOWN
  14. ATENOLOL [Concomitant]
     Active Substance: ATENOLOL
     Indication: Product used for unknown indication
  15. FLUOXETINE [Concomitant]
     Active Substance: FLUOXETINE HYDROCHLORIDE
     Indication: Depression
     Dosage: UNKNOWN

REACTIONS (17)
  - Acute kidney injury [Recovered/Resolved]
  - Metabolic acidosis [Recovered/Resolved]
  - Hyperlactacidaemia [Recovered/Resolved]
  - Electrocardiogram QT prolonged [Recovered/Resolved]
  - Drug abuse [Unknown]
  - Overdose [Unknown]
  - Nausea [Recovered/Resolved]
  - Vomiting [Recovered/Resolved]
  - Tachypnoea [Recovered/Resolved]
  - Abdominal pain upper [Recovered/Resolved]
  - Abdominal pain [Recovered/Resolved]
  - Hypertension [Recovered/Resolved]
  - Tachycardia [Recovered/Resolved]
  - Anxiety [Recovered/Resolved]
  - Tremor [Recovered/Resolved]
  - Withdrawal syndrome [Unknown]
  - Product use in unapproved indication [Unknown]
